FAERS Safety Report 20420537 (Version 1)
Quarter: 2022Q1

REPORT INFORMATION
  Report Type: Spontaneous
  Country: US (occurrence: None)
  Receive Date: 20220202
  Receipt Date: 20220202
  Transmission Date: 20220423
  Serious: Yes (Other)
  Sender: FDA-Public Use
  Company Number: None

PATIENT
  Age: 65 Year
  Sex: Male
  Weight: 78.75 kg

DRUGS (14)
  1. CABENUVA [Suspect]
     Active Substance: CABOTEGRAVIR\RILPIVIRINE
     Indication: HIV infection
     Dosage: FREQUENCY : MONTHLY;?
     Route: 030
     Dates: start: 20210528, end: 20211227
  2. CABENUVA [Suspect]
     Active Substance: CABOTEGRAVIR\RILPIVIRINE
     Indication: HIV infection
     Dosage: FREQUENCY : MONTHLY;?
     Route: 030
     Dates: start: 20210528, end: 20211227
  3. ANDROGEL [Concomitant]
     Active Substance: TESTOSTERONE
  4. HYDROCHLOROTHIAZIDE [Concomitant]
     Active Substance: HYDROCHLOROTHIAZIDE
  5. ASPIRIN [Concomitant]
     Active Substance: ASPIRIN
  6. LYRICA [Concomitant]
     Active Substance: PREGABALIN
  7. ZENPEP [Concomitant]
     Active Substance: PANCRELIPASE AMYLASE\PANCRELIPASE LIPASE\PANCRELIPASE PROTEASE
  8. OMEPRAZOLE [Concomitant]
     Active Substance: OMEPRAZOLE
  9. METFORMIN HYDROCHLORIDE [Concomitant]
     Active Substance: METFORMIN HYDROCHLORIDE
  10. NAPROXEN [Concomitant]
     Active Substance: NAPROXEN
  11. JARRO-DOPHILUD PROBIOTIC [Concomitant]
  12. CURCUMIN ELITE 9 [Concomitant]
  13. GREEN TEA EXTRACT [Concomitant]
  14. TRYPTOPHAN [Concomitant]
     Active Substance: TRYPTOPHAN

REACTIONS (4)
  - Back pain [None]
  - Nodule [None]
  - Pyrexia [None]
  - Muscle swelling [None]

NARRATIVE: CASE EVENT DATE: 20220124
